FAERS Safety Report 7741469-4 (Version None)
Quarter: 2011Q3

REPORT INFORMATION
  Report Type: 
  Country: None (occurrence: None)
  Receive Date: 20110909
  Receipt Date: 20110831
  Transmission Date: 20111222
  Serious: Yes (Hospitalization)
  Sender: FDA-Public Use
  Company Number: GB-ASTRAZENECA-2011SE52258

PATIENT
  Age: 67 Year
  Sex: Female

DRUGS (18)
  1. MEGESTROL ACETATE [Concomitant]
  2. MIRTAZAPINE [Concomitant]
  3. OMEPRAZOLE [Concomitant]
  4. GENTAMICIN [Concomitant]
  5. METFORMIN [Concomitant]
  6. ACETAMINOPHEN [Concomitant]
  7. CLARITHROMYCIN [Concomitant]
  8. AMOXICILLIN AND CLAVULANATE POTASSIUM [Concomitant]
  9. HALOPERIDOL [Concomitant]
  10. PIPERACILLIN AND TAZOBACTAM [Concomitant]
  11. ALBUTEROL [Concomitant]
  12. PIOGLITAZONE [Concomitant]
  13. GEFITINIB [Suspect]
     Route: 048
  14. DOCUSATE [Concomitant]
  15. NYSTATIN [Concomitant]
  16. METHYLPREDNISOLONE [Concomitant]
  17. MORPHINE [Concomitant]
  18. ONDANSETRON [Concomitant]

REACTIONS (3)
  - PYREXIA [None]
  - INFLAMMATORY MARKER INCREASED [None]
  - INTERSTITIAL LUNG DISEASE [None]
